FAERS Safety Report 22347905 (Version 3)
Quarter: 2023Q2

REPORT INFORMATION
  Report Type: Spontaneous
  Country: CZ (occurrence: CZ)
  Receive Date: 20230522
  Receipt Date: 20230613
  Transmission Date: 20230721
  Serious: Yes (Hospitalization)
  Sender: FDA-Public Use
  Company Number: CZ-ABBVIE-4772872

PATIENT
  Age: 77 Year
  Sex: Male
  Weight: 70 kg

DRUGS (12)
  1. CARBIDOPA\LEVODOPA [Suspect]
     Active Substance: CARBIDOPA\LEVODOPA
     Indication: Parkinson^s disease
     Dosage: UNIT DOSE 20 MG/ML, CONTINUOUS DOSE 3.4ML/HOUR, MORNING DOSE 9.3 ML/HOUR, EXTRA DOSE 1 ML
     Route: 050
     Dates: start: 20230515, end: 20230517
  2. CARBIDOPA\LEVODOPA [Suspect]
     Active Substance: CARBIDOPA\LEVODOPA
     Dosage: UNIT DOSE 20 MG/ML, CONTINUOUS DOSE 3.4ML/HOUR, MORNING DOSE 9.3 ML/HOUR, EXTRA DOSE 1 ML
     Route: 050
     Dates: start: 20230518
  3. SINEPAR [Concomitant]
     Indication: Parkinson^s disease
     Dosage: 200/50 MG
     Route: 048
     Dates: start: 20230515
  4. SINEPAR [Concomitant]
     Indication: Parkinson^s disease
     Dosage: 200/50 MG FREQUENCY TEXT: 1 IN EVENING
     Route: 048
     Dates: start: 20230515
  5. MELPERONE HYDROCHLORIDE [Concomitant]
     Active Substance: MELPERONE HYDROCHLORIDE
     Indication: Psychiatric disorder prophylaxis
     Dosage: FREQUENCY TEXT: 3 IN THE EVENING
     Route: 048
     Dates: start: 20230515
  6. BISOPROLOL FUMARATE [Concomitant]
     Active Substance: BISOPROLOL FUMARATE
     Indication: Cardiac failure chronic
     Dosage: FREQUENCY TEXT: 1-0-0
     Route: 048
     Dates: start: 20230113
  7. QUETIAPINE FUMARATE [Concomitant]
     Active Substance: QUETIAPINE FUMARATE
     Indication: Psychiatric disorder prophylaxis
     Dosage: FREQUENCY TEXT: 1-1-2-2
     Route: 048
     Dates: start: 20160128
  8. VITAMIN B COMPLEX [Concomitant]
     Active Substance: CYANOCOBALAMIN\DEXPANTHENOL\NIACINAMIDE\PYRIDOXINE HYDROCHLORIDE\RIBOFLAVIN 5^-PHOSPHATE SODIUM\THIA
     Indication: Nervous system disorder prophylaxis
     Route: 048
     Dates: start: 20230515
  9. VITAMIN B COMPLEX [Concomitant]
     Active Substance: CYANOCOBALAMIN\DEXPANTHENOL\NIACINAMIDE\PYRIDOXINE HYDROCHLORIDE\RIBOFLAVIN 5^-PHOSPHATE SODIUM\THIA
     Indication: Nervous system disorder prophylaxis
     Dosage: FREQUENCY TEXT: 1-0-0
     Route: 048
     Dates: start: 20230515
  10. FOLIC ACID [Concomitant]
     Active Substance: FOLIC ACID
     Indication: Nervous system disorder prophylaxis
     Route: 048
     Dates: start: 20230515
  11. FOLIC ACID [Concomitant]
     Active Substance: FOLIC ACID
     Indication: Nervous system disorder prophylaxis
     Dosage: FREQUENCY TEXT: 1-0-0
     Route: 048
     Dates: start: 20230515
  12. CITALOPRAM [Concomitant]
     Active Substance: CITALOPRAM HYDROBROMIDE
     Indication: Prophylaxis
     Dosage: FREQUENCY TEXT: 1-1-0
     Route: 048
     Dates: start: 20171120

REACTIONS (2)
  - Pneumonia [Recovered/Resolved]
  - Product administered at inappropriate site [Unknown]

NARRATIVE: CASE EVENT DATE: 20230517
